FAERS Safety Report 21358132 (Version 1)
Quarter: 2022Q3

REPORT INFORMATION
  Report Type: Spontaneous
  Country: US (occurrence: None)
  Receive Date: 20220921
  Receipt Date: 20220921
  Transmission Date: 20221027
  Serious: Yes (Other)
  Sender: FDA-Public Use
  Company Number: US-Hikma Pharmaceuticals USA Inc.-US-H14001-22-02331

PATIENT
  Sex: Female

DRUGS (1)
  1. METHADONE [Suspect]
     Active Substance: METHADONE HYDROCHLORIDE
     Indication: Product used for unknown indication
     Dosage: UNKNOWN
     Route: 065

REACTIONS (8)
  - Bone disorder [Unknown]
  - Nerve injury [Unknown]
  - Gait disturbance [Unknown]
  - Mental impairment [Unknown]
  - Memory impairment [Unknown]
  - Hallucination [Unknown]
  - Withdrawal syndrome [Unknown]
  - Adverse event [Unknown]
